FAERS Safety Report 24982560 (Version 5)
Quarter: 2025Q2

REPORT INFORMATION
  Report Type: Spontaneous
  Country: US (occurrence: US)
  Receive Date: 20250218
  Receipt Date: 20250515
  Transmission Date: 20250716
  Serious: No
  Sender: PFIZER
  Company Number: US-PFIZER INC-202500028868

PATIENT
  Age: 72 Year
  Sex: Female

DRUGS (3)
  1. TUKYSA [Suspect]
     Active Substance: TUCATINIB
     Dosage: 150MG 2 TABLETS TWICE A DAY/300MG TWICE DAILY
  2. CAPECITABINE [Concomitant]
     Active Substance: CAPECITABINE
  3. TRASTUZUMAB [Concomitant]
     Active Substance: TRASTUZUMAB

REACTIONS (1)
  - Aphonia [Unknown]
